FAERS Safety Report 12649993 (Version 2)
Quarter: 2016Q4

REPORT INFORMATION
  Report Type: Spontaneous
  Country: US (occurrence: US)
  Receive Date: 20160813
  Receipt Date: 20161013
  Transmission Date: 20170207
  Serious: No
  Sender: FDA-Public Use
  Company Number: US-ASTRAZENECA-2016SE86438

PATIENT
  Age: 995 Month
  Sex: Female
  Weight: 62.1 kg

DRUGS (6)
  1. TUDORZA PRESSAIR [Suspect]
     Active Substance: ACLIDINIUM BROMIDE
     Indication: CHRONIC OBSTRUCTIVE PULMONARY DISEASE
     Dosage: 400 MCG.1 PUFF 2 TIMES DAILY
     Route: 055
     Dates: start: 201607
  2. ADVAIR HFA [Concomitant]
     Active Substance: FLUTICASONE PROPIONATE\SALMETEROL XINAFOATE
     Indication: CHRONIC OBSTRUCTIVE PULMONARY DISEASE
     Dosage: EVERY 12 HOURS
     Route: 055
     Dates: start: 2010
  3. TUDORZA PRESSAIR [Suspect]
     Active Substance: ACLIDINIUM BROMIDE
     Indication: ASTHMA
     Dosage: 400 MCG.1 PUFF 2 TIMES DAILY
     Route: 055
     Dates: start: 201607
  4. PROAIR HFA [Concomitant]
     Active Substance: ALBUTEROL SULFATE
     Indication: ASTHMA
     Dosage: INTERMITTENT
     Route: 055
     Dates: start: 2010
  5. ADVAIR HFA [Concomitant]
     Active Substance: FLUTICASONE PROPIONATE\SALMETEROL XINAFOATE
     Indication: ASTHMA
     Dosage: EVERY 12 HOURS
     Route: 055
     Dates: start: 2010
  6. PROAIR HFA [Concomitant]
     Active Substance: ALBUTEROL SULFATE
     Indication: CHRONIC OBSTRUCTIVE PULMONARY DISEASE
     Dosage: INTERMITTENT
     Route: 055
     Dates: start: 2010

REACTIONS (2)
  - Dysgeusia [Unknown]
  - Product quality issue [Unknown]

NARRATIVE: CASE EVENT DATE: 201607
